FAERS Safety Report 19710196 (Version 2)
Quarter: 2021Q3

REPORT INFORMATION
  Report Type: Report from Study
  Country: US (occurrence: US)
  Receive Date: 20210817
  Receipt Date: 20210915
  Transmission Date: 20211014
  Serious: Yes (Death, Hospitalization)
  Sender: FDA-Public Use
  Company Number: US-TG THERAPEUTICS INC.-TGT002091

PATIENT
  Sex: Male

DRUGS (1)
  1. UMBRALISIB [Suspect]
     Active Substance: UMBRALISIB
     Indication: MANTLE CELL LYMPHOMA
     Dosage: 800 MILLIGRAM, QD
     Route: 048

REACTIONS (2)
  - Hospitalisation [Unknown]
  - Death [Fatal]
